FAERS Safety Report 4733218-9 (Version None)
Quarter: 2005Q3

REPORT INFORMATION
  Report Type: 
  Country: None (occurrence: None)
  Receive Date: 20050803
  Receipt Date: 20050802
  Transmission Date: 20060218
  Serious: Yes (Death)
  Sender: FDA-Public Use
  Company Number: JP-SANOFI-SYNTHELABO-F01200501397

PATIENT
  Sex: Male
  Weight: 87 kg

DRUGS (3)
  1. OXALIPLATIN [Suspect]
     Indication: COLON CANCER
     Dosage: 164.9MG/BODY=85MG/M2, DR
     Route: 042
     Dates: start: 20050707, end: 20050707
  2. FLUOROURACIL [Suspect]
     Dosage: 776 MG/BODY=400 MG/M2 AS BOLUS THEN 1164 MG/BODY=600 MG/M2 AS CONTINUOUS INFUSION
     Route: 042
     Dates: start: 20050707, end: 20050708
  3. CALCIUM LEVOFOLINATE [Suspect]
     Dosage: 194 MG/BODY=100 MG/M2, DR
     Route: 042
     Dates: start: 20050707, end: 20050708

REACTIONS (8)
  - BLOOD LACTATE DEHYDROGENASE INCREASED [None]
  - CARDIO-RESPIRATORY ARREST [None]
  - CEREBROVASCULAR DISORDER [None]
  - DIARRHOEA [None]
  - FALL [None]
  - MALAISE [None]
  - MYOCARDIAL INFARCTION [None]
  - PULMONARY EMBOLISM [None]
